FAERS Safety Report 7055543-1 (Version None)
Quarter: 2010Q4

REPORT INFORMATION
  Report Type: 
  Country: None (occurrence: None)
  Receive Date: 20101021
  Receipt Date: 20100922
  Transmission Date: 20110411
  Serious: No
  Sender: FDA-Public Use
  Company Number: US-BAYER-201030920NA

PATIENT
  Sex: Male

DRUGS (4)
  1. BETAPACE [Suspect]
     Indication: ATRIAL FIBRILLATION
     Dosage: 120 MG
     Route: 065
  2. LISINOPRIL [Suspect]
     Indication: HYPERTENSION
     Dosage: 10 MG
     Route: 065
  3. FUROSEMIDE [Concomitant]
     Indication: HYPERTENSION
     Dosage: 20 MG
     Route: 065
  4. POTASSIUM CHLORIDE [Concomitant]
     Dosage: 10 MEQ
     Route: 065

REACTIONS (2)
  - COUGH [None]
  - HYPERTENSION [None]
